FAERS Safety Report 16501338 (Version 1)
Quarter: 2019Q3

REPORT INFORMATION
  Report Type: Spontaneous
  Country: SE (occurrence: SE)
  Receive Date: 20190701
  Receipt Date: 20190701
  Transmission Date: 20191004
  Serious: Yes (Hospitalization)
  Sender: FDA-Public Use
  Company Number: SE-PFIZER INC-2019274900

PATIENT
  Age: 21 Year
  Sex: Female

DRUGS (2)
  1. LERGIGAN [PROMETHAZINE HYDROCHLORIDE] [Suspect]
     Active Substance: PROMETHAZINE HYDROCHLORIDE
     Dosage: 2.5 G, UNK
     Route: 048
     Dates: start: 20190404, end: 20190404
  2. SERTRALINE HCL [Suspect]
     Active Substance: SERTRALINE HYDROCHLORIDE
     Dosage: 5 G, UNK
     Route: 048
     Dates: start: 20190404, end: 20190404

REACTIONS (6)
  - Hallucination [Unknown]
  - Intentional self-injury [Unknown]
  - Vomiting [Unknown]
  - Akathisia [Unknown]
  - Anxiety [Unknown]
  - Intentional overdose [Unknown]

NARRATIVE: CASE EVENT DATE: 201904
